FAERS Safety Report 6480306-5 (Version None)
Quarter: 2009Q4

REPORT INFORMATION
  Report Type: 
  Country: None (occurrence: None)
  Receive Date: 20091123
  Receipt Date: 20090805
  Transmission Date: 20100525
  Serious: No
  Sender: FDA-Public Use
  Company Number: 8049979

PATIENT
  Age: 47 Year
  Sex: Female
  Weight: 111.5 kg

DRUGS (8)
  1. CIMZIA [Suspect]
     Indication: CROHN'S DISEASE
     Dosage: 400 MG SC
     Route: 058
     Dates: start: 20090604
  2. PENTASA [Concomitant]
  3. NORVASC [Concomitant]
  4. HYDROCHLOROTHIAZIDE [Concomitant]
  5. FOLIC ACID [Concomitant]
  6. COLESTID [Concomitant]
  7. VITAMIN B-12 [Concomitant]
  8. VICODIN ES [Concomitant]

REACTIONS (5)
  - ABDOMINAL DISCOMFORT [None]
  - BLOOD POTASSIUM DECREASED [None]
  - CHAPPED LIPS [None]
  - FREQUENT BOWEL MOVEMENTS [None]
  - LIP PAIN [None]
